FAERS Safety Report 19214632 (Version 3)
Quarter: 2021Q2

REPORT INFORMATION
  Report Type: Spontaneous
  Country: US (occurrence: US)
  Receive Date: 20210505
  Receipt Date: 20210630
  Transmission Date: 20210717
  Serious: No
  Sender: FDA-Public Use
  Company Number: US-ORGANON-O2104USA002524

PATIENT
  Age: 23 Year
  Sex: Female
  Weight: 171.43 kg

DRUGS (2)
  1. NEXPLANON [Suspect]
     Active Substance: ETONOGESTREL
     Dosage: 1 ROD, 68 MG, ONCE
     Route: 059
     Dates: start: 20180124
  2. NEXPLANON [Suspect]
     Active Substance: ETONOGESTREL
     Dosage: 1 DOSAGE FORM IN LEFT UPPER ARM
     Route: 059

REACTIONS (5)
  - Device placement issue [Not Recovered/Not Resolved]
  - No adverse event [Unknown]
  - Product dose omission issue [Unknown]
  - Complication associated with device [Not Recovered/Not Resolved]
  - Incorrect product administration duration [Unknown]

NARRATIVE: CASE EVENT DATE: 201801
